FAERS Safety Report 21913798 (Version 1)
Quarter: 2023Q1

REPORT INFORMATION
  Report Type: Spontaneous
  Country: US (occurrence: US)
  Receive Date: 20230125
  Receipt Date: 20230125
  Transmission Date: 20230417
  Serious: Yes (Hospitalization)
  Sender: FDA-Public Use
  Company Number: US-ABBVIE-4283132

PATIENT

DRUGS (1)
  1. HUMIRA [Suspect]
     Active Substance: ADALIMUMAB
     Indication: Rheumatoid arthritis
     Route: 058
     Dates: start: 20220320, end: 20220908

REACTIONS (8)
  - Fall [Recovering/Resolving]
  - Spinal cord compression [Unknown]
  - Joint swelling [Unknown]
  - Cervical cord compression [Unknown]
  - Arthritis [Unknown]
  - Pain [Unknown]
  - Joint effusion [Unknown]
  - Cervical spinal stenosis [Unknown]
